FAERS Safety Report 4613874-6 (Version None)
Quarter: 2005Q1

REPORT INFORMATION
  Report Type: 
  Country: None (occurrence: None)
  Receive Date: 20050321
  Receipt Date: 20050314
  Transmission Date: 20050727
  Serious: Yes (Death, Hospitalization)
  Sender: FDA-Public Use
  Company Number: PHBS2005IE03679

PATIENT
  Sex: Female

DRUGS (2)
  1. CLARITHROMYCIN [Concomitant]
     Indication: SKIN REACTION
  2. GLEEVEC [Suspect]
     Indication: CHRONIC MYELOID LEUKAEMIA
     Route: 065

REACTIONS (4)
  - CONFUSIONAL STATE [None]
  - DEATH [None]
  - DIZZINESS [None]
  - SKIN REACTION [None]
